FAERS Safety Report 8919847 (Version 1)
Quarter: 2012Q4

REPORT INFORMATION
  Report Type: 
  Country: JP (occurrence: JP)
  Receive Date: 20121121
  Receipt Date: 20121121
  Transmission Date: 20130627
  Serious: No
  Sender: FDA-Public Use
  Company Number: JP-JNJFOC-20110307278

PATIENT
  Age: 67 Year
  Sex: Male
  Weight: 71 kg

DRUGS (12)
  1. REMICADE [Suspect]
     Indication: PSORIATIC ARTHROPATHY
     Route: 042
     Dates: start: 20100624, end: 20100624
  2. REMICADE [Suspect]
     Indication: PSORIATIC ARTHROPATHY
     Route: 042
     Dates: start: 20100709, end: 20100709
  3. REMICADE [Suspect]
     Indication: PSORIATIC ARTHROPATHY
     Route: 042
     Dates: start: 20100806, end: 20100806
  4. REMICADE [Suspect]
     Indication: PSORIATIC ARTHROPATHY
     Route: 042
     Dates: start: 20100930, end: 20100930
  5. REMICADE [Suspect]
     Indication: PSORIATIC ARTHROPATHY
     Route: 042
     Dates: start: 20101125, end: 20101125
  6. REMICADE [Suspect]
     Indication: PSORIATIC ARTHROPATHY
     Dosage: 6th and last dose
     Route: 042
     Dates: start: 20110120, end: 20110120
  7. RHEUMATREX [Concomitant]
     Indication: PSORIATIC ARTHROPATHY
     Route: 048
  8. ISONIAZID [Concomitant]
     Indication: ANTIBIOTIC PROPHYLAXIS
     Route: 048
     Dates: start: 20100623, end: 20110317
  9. FOLIAMIN [Concomitant]
     Indication: PROPHYLAXIS
     Route: 048
  10. ONEALFA [Concomitant]
     Indication: PROPHYLAXIS
     Route: 048
  11. GASTER [Concomitant]
     Indication: PROPHYLAXIS
     Route: 048
  12. MICARDIS [Concomitant]
     Indication: HYPERTENSION
     Route: 048

REACTIONS (1)
  - Herpes zoster [Recovered/Resolved]
